FAERS Safety Report 17775444 (Version 1)
Quarter: 2020Q2

REPORT INFORMATION
  Report Type: Spontaneous
  Country: US (occurrence: US)
  Receive Date: 20200513
  Receipt Date: 20200513
  Transmission Date: 20200714
  Serious: No
  Sender: FDA-Public Use
  Company Number: US-ACADIA PHARMACEUTICALS INC.-ACA-2020-PIM-000834

PATIENT
  Sex: Male

DRUGS (9)
  1. CARBIDOPA/LEVODOPA [Concomitant]
     Active Substance: CARBIDOPA\LEVODOPA
     Dosage: 23.75-95 MG, ONE CAPSULE ER, 4 TIMES A DAY
     Dates: start: 20180129
  2. INBRIJA [Concomitant]
     Active Substance: LEVODOPA
     Indication: PRODUCT USED FOR UNKNOWN INDICATION
     Dosage: 42 MG, INHALE 1 CAPSULE, 0-3 X/ DAY, PRN
     Route: 048
     Dates: start: 20190507
  3. MELATONIN [Concomitant]
     Active Substance: MELATONIN
     Indication: PRODUCT USED FOR UNKNOWN INDICATION
     Dosage: 10 MILLIGRAM, 1 CAPSULE NIGHTLY
     Dates: start: 20160128
  4. RASAGILINE. [Concomitant]
     Active Substance: RASAGILINE
     Indication: PRODUCT USED FOR UNKNOWN INDICATION
     Dosage: 1 MILLIGRAM, 1 TAB QD
     Route: 048
     Dates: start: 20101025
  5. CARBIDOPA/LEVODOPA [Concomitant]
     Active Substance: CARBIDOPA\LEVODOPA
     Indication: PRODUCT USED FOR UNKNOWN INDICATION
     Dosage: 36.25-145 MG, 2 CAPSULE 5 TIMES A DAY
     Dates: start: 20150709
  6. GABAPENTIN. [Concomitant]
     Active Substance: GABAPENTIN
     Indication: PRODUCT USED FOR UNKNOWN INDICATION
     Dosage: 100 MILLIGRAM, QHS
     Route: 048
     Dates: start: 20100507
  7. NUPLAZID [Suspect]
     Active Substance: PIMAVANSERIN TARTRATE
     Indication: PARKINSON^S DISEASE PSYCHOSIS
     Dosage: 34 MILLIGRAM, QD AT BEDTIME
     Route: 065
     Dates: start: 20200207, end: 20200301
  8. LIDOCAINE. [Concomitant]
     Active Substance: LIDOCAINE
     Indication: PRODUCT USED FOR UNKNOWN INDICATION
     Dosage: 5% PATCH, PLACE 1 PATCH ON SKIN DAILY
     Dates: start: 20191110
  9. MYRBETRIQ [Concomitant]
     Active Substance: MIRABEGRON
     Indication: PRODUCT USED FOR UNKNOWN INDICATION
     Dosage: 25 MILLIGRAM, ER: 1 TAB, QD
     Route: 048
     Dates: start: 20150511

REACTIONS (9)
  - Constipation [Recovering/Resolving]
  - Flatulence [Recovering/Resolving]
  - Discomfort [Recovering/Resolving]
  - Fatigue [Recovering/Resolving]
  - Feeling abnormal [Recovering/Resolving]
  - Dizziness [Recovered/Resolved]
  - Diarrhoea [Recovering/Resolving]
  - Abdominal pain [Recovering/Resolving]
  - Nausea [Recovering/Resolving]

NARRATIVE: CASE EVENT DATE: 2020
